FAERS Safety Report 9392000 (Version 1)
Quarter: 2013Q3

REPORT INFORMATION
  Report Type: Spontaneous
  Country: JP (occurrence: JP)
  Receive Date: 20130709
  Receipt Date: 20130709
  Transmission Date: 20140515
  Serious: Yes (Other)
  Sender: FDA-Public Use
  Company Number: JP-ELI_LILLY_AND_COMPANY-JP201305008029

PATIENT
  Age: 63 Year
  Sex: Female

DRUGS (6)
  1. EVISTA [Suspect]
     Indication: OSTEOPOROSIS POSTMENOPAUSAL
     Dosage: 60 MG, QD
     Route: 048
     Dates: start: 20101101, end: 201305
  2. RINLAXER [Concomitant]
     Indication: MUSCULOSKELETAL STIFFNESS
     Dosage: 250 MG, PRN
     Route: 048
     Dates: start: 20110228
  3. RINLAXER [Concomitant]
     Indication: TENSION HEADACHE
  4. SG                                 /01737201/ [Concomitant]
     Indication: MUSCULOSKELETAL STIFFNESS
     Dosage: 1 G, PRN
     Route: 048
     Dates: start: 20110228
  5. SG                                 /01737201/ [Concomitant]
     Indication: TENSION HEADACHE
  6. MOHRUS [Concomitant]
     Indication: OSTEOARTHRITIS
     Dosage: 40 MG, QD
     Route: 062
     Dates: start: 20110502

REACTIONS (3)
  - Retinal haemorrhage [Unknown]
  - Venous occlusion [Unknown]
  - Off label use [Recovered/Resolved]
